FAERS Safety Report 18690754 (Version 2)
Quarter: 2021Q1

REPORT INFORMATION
  Report Type: Spontaneous
  Country: US (occurrence: US)
  Receive Date: 20210101
  Receipt Date: 20210202
  Transmission Date: 20210419
  Serious: No
  Sender: FDA-Public Use
  Company Number: US-ASTRAZENECA-2020SF62638

PATIENT
  Age: 80 Year
  Sex: Female

DRUGS (9)
  1. FARXIGA [Suspect]
     Active Substance: DAPAGLIFLOZIN PROPANEDIOL
     Indication: CARDIAC FAILURE
     Route: 048
     Dates: start: 202011
  2. TOPROL XL [Concomitant]
     Active Substance: METOPROLOL SUCCINATE
  3. ALDACTONE [Concomitant]
     Active Substance: SPIRONOLACTONE
  4. SYNTHROID [Concomitant]
     Active Substance: LEVOTHYROXINE SODIUM
  5. AMIODERONE [Concomitant]
     Active Substance: AMIODARONE
  6. CLOTRIMAZOLE. [Concomitant]
     Active Substance: CLOTRIMAZOLE
     Indication: FUNGAL INFECTION
  7. BENAZEPRIL [Concomitant]
     Active Substance: BENAZEPRIL HYDROCHLORIDE
  8. LASIX [Concomitant]
     Active Substance: FUROSEMIDE
     Dosage: 40MG IN THE MORNING, 20MG IN THE AFTERNOON, BUT INCREASES THE AFTERNOON DOSE TO 40MG WHEN IN VOL...
  9. COUMADIN [Concomitant]
     Active Substance: WARFARIN SODIUM

REACTIONS (6)
  - Vulvovaginal mycotic infection [Recovering/Resolving]
  - Glucose urine present [Unknown]
  - Dyspnoea [Recovering/Resolving]
  - Dizziness exertional [Recovering/Resolving]
  - Fluid overload [Recovered/Resolved]
  - Chest discomfort [Recovering/Resolving]
